FAERS Safety Report 8032311-5 (Version None)
Quarter: 2012Q1

REPORT INFORMATION
  Report Type: 
  Country: None (occurrence: None)
  Receive Date: 20120110
  Receipt Date: 20120102
  Transmission Date: 20120608
  Serious: Yes (Other)
  Sender: FDA-Public Use
  Company Number: FR-BRISTOL-MYERS SQUIBB COMPANY-16326282

PATIENT
  Age: 1 Year
  Sex: Female
  Weight: 9 kg

DRUGS (5)
  1. ZOFRAN [Concomitant]
     Indication: ANTIEMETIC SUPPORTIVE CARE
     Route: 042
     Dates: start: 20111020
  2. MESNA [Suspect]
     Indication: PROPHYLAXIS
     Route: 042
     Dates: start: 20111021
  3. ETOPOSIDE [Suspect]
     Indication: AESTHESIONEUROBLASTOMA
     Dosage: POWDER FOR SOLUTION FOR INJECTION,INFUSED TWICE FOR 2 HRS WITH 28MG(1ST INF:21OCT11,2ND INF 22OCT11
     Route: 042
     Dates: start: 20111021, end: 20111022
  4. IFOSFAMIDE [Suspect]
     Indication: AESTHESIONEUROBLASTOMA
     Dosage: INFUSED FOR 3 HOURS ON 21-0CT-2011
     Route: 042
     Dates: start: 20111021
  5. CHLORPROMAZINE HCL [Concomitant]
     Indication: ANTIEMETIC SUPPORTIVE CARE
     Route: 042
     Dates: start: 20111020

REACTIONS (5)
  - HAEMOGLOBIN DECREASED [None]
  - TACHYCARDIA [None]
  - ANGIOEDEMA [None]
  - HYPOTENSION [None]
  - WHITE BLOOD CELL COUNT INCREASED [None]
